FAERS Safety Report 10475767 (Version 2)
Quarter: 2014Q4

REPORT INFORMATION
  Report Type: Spontaneous
  Country: US (occurrence: US)
  Receive Date: 20140925
  Receipt Date: 20141224
  Transmission Date: 20150528
  Serious: No
  Sender: FDA-Public Use
  Company Number: US-GLAXOSMITHKLINE-A1053066A

PATIENT
  Sex: Female

DRUGS (1)
  1. RYTHMOL SR [Suspect]
     Active Substance: PROPAFENONE HYDROCHLORIDE
     Indication: CARDIAC DISORDER
     Dosage: 225 MG, UNKNOWN DOSING
     Route: 065
     Dates: start: 20131202

REACTIONS (3)
  - Cardiac disorder [Not Recovered/Not Resolved]
  - Surgery [Unknown]
  - Emotional disorder [Not Recovered/Not Resolved]
